FAERS Safety Report 10068828 (Version 1)
Quarter: 2014Q2

REPORT INFORMATION
  Report Type: Spontaneous
  Country: US (occurrence: US)
  Receive Date: 20140409
  Receipt Date: 20140409
  Transmission Date: 20141212
  Serious: Yes (Other)
  Sender: FDA-Public Use
  Company Number: US-BAYER-2014-049540

PATIENT
  Sex: 0

DRUGS (1)
  1. ALEVE TABLET [Suspect]
     Dosage: 2 DF, UNK

REACTIONS (7)
  - Hypersensitivity [Recovering/Resolving]
  - Urticaria [Recovering/Resolving]
  - Generalised erythema [Recovering/Resolving]
  - Pruritus generalised [Recovering/Resolving]
  - Pharyngeal erythema [Recovering/Resolving]
  - Throat irritation [Recovering/Resolving]
  - Pharyngeal oedema [Recovering/Resolving]
